FAERS Safety Report 4884153-7 (Version None)
Quarter: 2005Q4

REPORT INFORMATION
  Report Type: 
  Country: None (occurrence: None)
  Receive Date: 20051201
  Receipt Date: 20050908
  Transmission Date: 20060501
  Serious: No
  Sender: FDA-Public Use
  Company Number: 2005PV002000

PATIENT
  Age: 60 Year
  Sex: Male
  Weight: 64.4108 kg

DRUGS (10)
  1. BYETTA [Suspect]
     Indication: DIABETES MELLITUS NON-INSULIN-DEPENDENT
     Dosage: UNKNOWN; UNK; SC
     Route: 058
     Dates: start: 20050822, end: 20050903
  2. BYETTA [Suspect]
     Indication: DIABETES MELLITUS NON-INSULIN-DEPENDENT
     Dosage: UNKNOWN; UNK; SC
     Route: 058
     Dates: start: 20050908
  3. AMARYL [Concomitant]
  4. HUMULIN 70/30 [Concomitant]
  5. REGULAR INSULIN [Concomitant]
  6. VERAPAMIL [Concomitant]
  7. HYZAAR [Concomitant]
  8. ALBUTEROL SULFATE AUTOHALER [Concomitant]
  9. ADVAIR DISKUS 100/50 [Concomitant]
  10. AZATHIOPRINE [Concomitant]

REACTIONS (8)
  - BLOOD GLUCOSE DECREASED [None]
  - DECREASED APPETITE [None]
  - DIZZINESS [None]
  - GASTROOESOPHAGEAL REFLUX DISEASE [None]
  - NAUSEA [None]
  - VENTRICULAR EXTRASYSTOLES [None]
  - VERTIGO [None]
  - WEIGHT DECREASED [None]
